FAERS Safety Report 12311194 (Version 1)
Quarter: 2016Q2

REPORT INFORMATION
  Report Type: Spontaneous
  Country: US (occurrence: US)
  Receive Date: 20160427
  Receipt Date: 20160427
  Transmission Date: 20160815
  Serious: Yes (Hospitalization)
  Sender: FDA-Public Use
  Company Number: US-ALKERMES INC.-ALK-2015-001581

PATIENT
  Age: 52 Year
  Sex: Male
  Weight: 86.17 kg

DRUGS (1)
  1. VIVITROL [Suspect]
     Active Substance: NALTREXONE
     Indication: ALCOHOLISM
     Dosage: 380 MG, QMO
     Route: 030
     Dates: start: 201406, end: 201507

REACTIONS (5)
  - Alcohol withdrawal syndrome [Unknown]
  - Hepatic enzyme increased [Unknown]
  - Alcohol abuse [Unknown]
  - Alcoholism [Unknown]
  - Dependence [Recovered/Resolved]

NARRATIVE: CASE EVENT DATE: 2015
